APPROVED DRUG PRODUCT: CAPTOPRIL
Active Ingredient: CAPTOPRIL
Strength: 50MG
Dosage Form/Route: TABLET;ORAL
Application: A212809 | Product #003 | TE Code: AB
Applicant: AJANTA PHARMA LTD
Approved: Dec 13, 2019 | RLD: No | RS: No | Type: RX